FAERS Safety Report 15249011 (Version 1)
Quarter: 2018Q3

REPORT INFORMATION
  Report Type: Report from Study
  Country: US (occurrence: US)
  Receive Date: 20180807
  Receipt Date: 20180807
  Transmission Date: 20181010
  Serious: Yes (Death)
  Sender: FDA-Public Use
  Company Number: US-JNJFOC-20180529177

PATIENT
  Sex: Male

DRUGS (14)
  1. NORCO [Concomitant]
     Active Substance: ACETAMINOPHEN\HYDROCODONE BITARTRATE
  2. PREDNISONE. [Concomitant]
     Active Substance: PREDNISONE
  3. TYLENOL [Concomitant]
     Active Substance: ACETAMINOPHEN
  4. VITAMIN D [Concomitant]
     Active Substance: CHOLECALCIFEROL
  5. VITAMIN B6 [Concomitant]
     Active Substance: PYRIDOXINE HYDROCHLORIDE
  6. IMBRUVICA [Suspect]
     Active Substance: IBRUTINIB
     Indication: CHRONIC LYMPHOCYTIC LEUKAEMIA
     Route: 048
     Dates: start: 20170203
  7. ZANTAC [Concomitant]
     Active Substance: RANITIDINE HYDROCHLORIDE
  8. ACARBOSE. [Concomitant]
     Active Substance: ACARBOSE
  9. TUMS [Concomitant]
     Active Substance: CALCIUM CARBONATE
  10. LASIX [Concomitant]
     Active Substance: FUROSEMIDE
  11. LUPRON [Concomitant]
     Active Substance: LEUPROLIDE ACETATE
  12. MULTIVITAMINS [Concomitant]
     Active Substance: VITAMINS
  13. LIPITOR [Concomitant]
     Active Substance: ATORVASTATIN CALCIUM
  14. POTASSIUM [Concomitant]
     Active Substance: POTASSIUM

REACTIONS (1)
  - Prostate cancer metastatic [Fatal]
